FAERS Safety Report 22210832 (Version 1)
Quarter: 2023Q2

REPORT INFORMATION
  Report Type: Report from Study
  Country: CA (occurrence: CA)
  Receive Date: 20230414
  Receipt Date: 20230414
  Transmission Date: 20230722
  Serious: Yes (Other)
  Sender: FDA-Public Use
  Company Number: CA-SAMSUNG BIOEPIS-SB-2023-09718

PATIENT
  Age: 59 Year
  Sex: Female

DRUGS (1)
  1. ETANERCEPT [Suspect]
     Active Substance: ETANERCEPT
     Indication: Rheumatoid arthritis
     Route: 065
     Dates: start: 20221003, end: 20230401

REACTIONS (5)
  - Cerebrovascular accident [Unknown]
  - Erythema [Unknown]
  - Hypertension [Unknown]
  - Swelling face [Unknown]
  - Urticaria [Recovered/Resolved]
